FAERS Safety Report 22129491 (Version 5)
Quarter: 2023Q2

REPORT INFORMATION
  Report Type: Report from Study
  Country: US (occurrence: US)
  Receive Date: 20230323
  Receipt Date: 20230627
  Transmission Date: 20230721
  Serious: Yes (Hospitalization)
  Sender: FDA-Public Use
  Company Number: US-002147023-NVSC2023US063574

PATIENT
  Age: 79 Year
  Sex: Female
  Weight: 61.678 kg

DRUGS (7)
  1. TREPROSTINIL [Suspect]
     Active Substance: TREPROSTINIL
     Indication: Pulmonary arterial hypertension
     Dosage: 24 NG/KG/MIN, CONT
     Route: 042
     Dates: start: 20230313
  2. TREPROSTINIL [Suspect]
     Active Substance: TREPROSTINIL
     Dosage: 24 NG/KG/MIN, CONT
     Route: 042
  3. TREPROSTINIL [Suspect]
     Active Substance: TREPROSTINIL
     Dosage: 32 NG/KG/MIN, CONT (44 ML PER DAY)
     Route: 042
  4. TREPROSTINIL [Suspect]
     Active Substance: TREPROSTINIL
     Dosage: 34 NG/KG/MIN, CONT
     Route: 042
  5. OPSUMIT [Suspect]
     Active Substance: MACITENTAN
     Indication: Product used for unknown indication
     Dosage: UNK
     Route: 065
  6. SILDENAFIL CITRATE [Concomitant]
     Active Substance: SILDENAFIL CITRATE
     Indication: Product used for unknown indication
     Dosage: UNK
     Route: 065
  7. AMBRISENTAN [Concomitant]
     Active Substance: AMBRISENTAN
     Indication: Product used for unknown indication
     Dosage: UNK
     Route: 065

REACTIONS (11)
  - Anaemia [Unknown]
  - Depressed mood [Unknown]
  - Neck pain [Unknown]
  - Pain [Unknown]
  - Swelling [Unknown]
  - Skin irritation [Unknown]
  - Fatigue [Unknown]
  - Dyspnoea [Unknown]
  - Catheter site related reaction [Unknown]
  - Catheter site swelling [Unknown]
  - Catheter site erythema [Unknown]

NARRATIVE: CASE EVENT DATE: 20230517
